FAERS Safety Report 20070999 (Version 2)
Quarter: 2021Q4

REPORT INFORMATION
  Report Type: Report from Study
  Country: MX (occurrence: MX)
  Receive Date: 20211115
  Receipt Date: 20211124
  Transmission Date: 20220303
  Serious: Yes (Hospitalization)
  Sender: FDA-Public Use
  Company Number: MX-NOVARTISPH-NVSC2020MX348292

PATIENT
  Sex: Male
  Weight: 149 kg

DRUGS (4)
  1. TASIGNA [Suspect]
     Active Substance: NILOTINIB
     Indication: Chronic myeloid leukaemia
     Dosage: 800 MG, QD
     Route: 048
     Dates: start: 2012
  2. TASIGNA [Suspect]
     Active Substance: NILOTINIB
     Dosage: 200 MG, Q12H (8 OR 9 YEARS)
     Route: 048
     Dates: start: 2012
  3. ALBUTEROL [Concomitant]
     Active Substance: ALBUTEROL
     Indication: Asthma
     Dosage: UNK, Q8H (2 SHOTS IF NEEDED AND STARTED 15 YEARS AGO)
     Route: 055
  4. BETAMETHASONE [Concomitant]
     Active Substance: BETAMETHASONE
     Indication: Asthma
     Dosage: UNK, Q8H (2 SHOTS IF NEEDED AND STARTED 15 YEARS AGO)
     Route: 055

REACTIONS (3)
  - Accident [Recovered/Resolved with Sequelae]
  - Rash macular [Not Recovered/Not Resolved]
  - Inappropriate schedule of product administration [Not Recovered/Not Resolved]

NARRATIVE: CASE EVENT DATE: 20120101
